FAERS Safety Report 5026294-X (Version None)
Quarter: 2006Q2

REPORT INFORMATION
  Report Type: 
  Country: None (occurrence: None)
  Receive Date: 20060426
  Receipt Date: 20060124
  Transmission Date: 20061013
  Serious: Yes (Other)
  Sender: FDA-Public Use
  Company Number: 2006012217

PATIENT
  Age: 55 Year
  Sex: Female
  Weight: 86.1834 kg

DRUGS (11)
  1. LYRICA [Suspect]
     Indication: CHRONIC FATIGUE SYNDROME
     Dosage: 150 MG (50 MG,3 IN 1 D),ORAL
     Route: 048
     Dates: start: 20060113
  2. LYRICA [Suspect]
     Indication: FIBROMYALGIA
     Dosage: 150 MG (50 MG,3 IN 1 D),ORAL
     Route: 048
     Dates: start: 20060113
  3. MORPHINE SULFATE [Suspect]
     Indication: ILL-DEFINED DISORDER
     Dosage: ORAL
     Route: 048
     Dates: start: 20060113
  4. ACYCLOVIR [Suspect]
     Indication: HERPES VIRUS INFECTION
     Dosage: ORAL
     Route: 048
     Dates: start: 20060101
  5. ZOLOFT [Concomitant]
  6. ESTRACE [Concomitant]
  7. THYROID TAB [Concomitant]
  8. KLONOPIN [Concomitant]
  9. ULTRAM [Concomitant]
  10. IMITREX [Concomitant]
  11. LOPRESSOR [Concomitant]

REACTIONS (10)
  - BLISTER [None]
  - CANDIDIASIS [None]
  - GINGIVAL SWELLING [None]
  - HERPES VIRUS INFECTION [None]
  - LIP DISCOLOURATION [None]
  - LIP ULCERATION [None]
  - ORAL PAIN [None]
  - SWELLING FACE [None]
  - SWOLLEN TONGUE [None]
  - TONGUE COATED [None]
